FAERS Safety Report 8113429-5 (Version None)
Quarter: 2012Q1

REPORT INFORMATION
  Report Type: 
  Country: None (occurrence: None)
  Receive Date: 20120203
  Receipt Date: 20120124
  Transmission Date: 20120608
  Serious: Yes (Disabling)
  Sender: FDA-Public Use
  Company Number: FR-UCBSA-036067

PATIENT
  Age: 32 Year
  Sex: Female
  Weight: 58 kg

DRUGS (7)
  1. LACOSAMIDE [Suspect]
     Route: 048
     Dates: start: 20110101, end: 20110601
  2. TOPIRAMATE [Concomitant]
     Indication: EPILEPSY
     Route: 048
     Dates: start: 20101001
  3. LACOSAMIDE [Suspect]
     Indication: PARTIAL SEIZURES
     Route: 048
  4. TRILEPTAL [Concomitant]
     Indication: EPILEPSY
     Route: 048
     Dates: start: 20100401
  5. LACOSAMIDE [Suspect]
     Route: 048
     Dates: start: 20110601, end: 20110611
  6. LACOSAMIDE [Suspect]
     Route: 048
     Dates: start: 20110612, end: 20110612
  7. LACOSAMIDE [Suspect]
     Route: 048
     Dates: start: 20110613

REACTIONS (4)
  - NAUSEA [None]
  - GAIT DISTURBANCE [None]
  - VERTIGO [None]
  - DIPLOPIA [None]
